FAERS Safety Report 25866585 (Version 3)
Quarter: 2025Q4

REPORT INFORMATION
  Report Type: Report from Study
  Country: US (occurrence: None)
  Receive Date: 20250930
  Receipt Date: 20251221
  Transmission Date: 20260117
  Serious: Yes (Other)
  Sender: UCB
  Company Number: US-UCBSA-2025060182

PATIENT
  Weight: 51 kg

DRUGS (5)
  1. FENFLURAMINE [Suspect]
     Active Substance: FENFLURAMINE
     Indication: Lennox-Gastaut syndrome
     Dosage: 1.5 MILLILITER, 2X/DAY (BID) X 28 DAYS
  2. FENFLURAMINE [Suspect]
     Active Substance: FENFLURAMINE
     Dosage: 1 MILLILITER, 2X/DAY (BID) X 28 DAYS
  3. FENFLURAMINE [Suspect]
     Active Substance: FENFLURAMINE
     Dosage: 0.5 MILLILITER, 2X/DAY (BID) X 28 DAYS
  4. FENFLURAMINE [Suspect]
     Active Substance: FENFLURAMINE
     Dosage: 6.6 MILLIGRAM PER DAY
  5. FENFLURAMINE [Suspect]
     Active Substance: FENFLURAMINE
     Dosage: 1 MILLILITER, 3X/DAY (TID)

REACTIONS (3)
  - Partial seizures [Recovered/Resolved]
  - Drug ineffective [Unknown]
  - Off label use [Unknown]
